FAERS Safety Report 8228654-2 (Version None)
Quarter: 2012Q1

REPORT INFORMATION
  Report Type: 
  Country: None (occurrence: None)
  Receive Date: 20120322
  Receipt Date: 20110210
  Transmission Date: 20120608
  Serious: Yes (Life-Threatening, Hospitalization)
  Sender: FDA-Public Use
  Company Number: US-BRISTOL-MYERS SQUIBB COMPANY-15531338

PATIENT
  Age: 74 Year
  Sex: Male

DRUGS (4)
  1. TYLENOL [Concomitant]
     Indication: PREMEDICATION
  2. DECADRON [Concomitant]
     Indication: PREMEDICATION
  3. ERBITUX [Suspect]
     Indication: COLON CANCER METASTATIC
     Dosage: 4 VIALS OF 200MG,LOT 10C00063A EXPIRATION FEB 2013 1 VIAL OF 100MG 09C00510B EXPIRATION NOV 2012
     Route: 042
     Dates: start: 20110203
  4. BENADRYL [Concomitant]
     Indication: PREMEDICATION

REACTIONS (1)
  - HYPERSENSITIVITY [None]
